FAERS Safety Report 7929815-X (Version None)
Quarter: 2011Q4

REPORT INFORMATION
  Report Type: 
  Country: None (occurrence: None)
  Receive Date: 20111121
  Receipt Date: 20111109
  Transmission Date: 20120403
  Serious: Yes (Other)
  Sender: FDA-Public Use
  Company Number: JP-BRISTOL-MYERS SQUIBB COMPANY-16231805

PATIENT
  Age: 7 Decade
  Sex: Female

DRUGS (5)
  1. PARAPLATIN [Suspect]
     Indication: LUNG ADENOCARCINOMA
  2. TEGAFUR + URACIL [Suspect]
     Indication: LUNG ADENOCARCINOMA
  3. PACLITAXEL [Suspect]
     Indication: LUNG ADENOCARCINOMA
  4. VINORELBINE [Suspect]
     Indication: LUNG ADENOCARCINOMA
  5. GEFITINIB [Suspect]
     Indication: LUNG ADENOCARCINOMA
     Dates: start: 20080701

REACTIONS (1)
  - ACUTE MYELOID LEUKAEMIA [None]
